FAERS Safety Report 7729376-4 (Version None)
Quarter: 2011Q3

REPORT INFORMATION
  Report Type: 
  Country: None (occurrence: None)
  Receive Date: 20110906
  Receipt Date: 20110824
  Transmission Date: 20111222
  Serious: Yes (Hospitalization, Other)
  Sender: FDA-Public Use
  Company Number: FR-JNJFOC-20110803645

PATIENT
  Sex: Female

DRUGS (5)
  1. ACETAMINOPHEN [Concomitant]
     Route: 048
  2. ZOLPIDEM [Concomitant]
     Route: 048
  3. DURAGESIC-100 [Suspect]
     Indication: PRODUCT USED FOR UNKNOWN INDICATION
     Route: 062
     Dates: start: 20110629, end: 20110706
  4. DURAGESIC-100 [Suspect]
     Route: 062
     Dates: start: 20110707, end: 20110721
  5. OXYCODONE HCL [Suspect]
     Indication: PRODUCT USED FOR UNKNOWN INDICATION
     Route: 048
     Dates: start: 20110707, end: 20110721

REACTIONS (10)
  - GENERAL PHYSICAL HEALTH DETERIORATION [None]
  - HICCUPS [None]
  - DECREASED APPETITE [None]
  - VOMITING [None]
  - BACK PAIN [None]
  - WEIGHT DECREASED [None]
  - DYSURIA [None]
  - NAUSEA [None]
  - CREATININE RENAL CLEARANCE DECREASED [None]
  - URINARY RETENTION [None]
